FAERS Safety Report 10094412 (Version 1)
Quarter: 2014Q2

REPORT INFORMATION
  Report Type: Spontaneous
  Country: GB (occurrence: GB)
  Receive Date: 20140422
  Receipt Date: 20140422
  Transmission Date: 20141212
  Serious: Yes (Hospitalization, Other)
  Sender: FDA-Public Use
  Company Number: GB-MYLANLABS-2014S1008422

PATIENT
  Age: 47 Year
  Sex: Female
  Weight: 57 kg

DRUGS (5)
  1. ALENDRONATE [Suspect]
     Indication: OSTEOPOROSIS
     Route: 048
     Dates: start: 20140314, end: 20140327
  2. LANSOPRAZOLE [Concomitant]
  3. ADCAL D3 [Concomitant]
  4. CO-CODAMOL [Concomitant]
  5. METFORMIN [Concomitant]

REACTIONS (3)
  - Oesophagitis [Not Recovered/Not Resolved]
  - Odynophagia [Not Recovered/Not Resolved]
  - Treatment noncompliance [Unknown]
